FAERS Safety Report 9154218 (Version 3)
Quarter: 2013Q4

REPORT INFORMATION
  Report Type: Spontaneous
  Country: US (occurrence: US)
  Receive Date: 20130311
  Receipt Date: 20131004
  Transmission Date: 20140711
  Serious: Yes (Other)
  Sender: FDA-Public Use
  Company Number: US-009507513-1303USA003916

PATIENT
  Sex: Female
  Weight: 85.26 kg

DRUGS (7)
  1. FOSAMAX [Suspect]
     Indication: OSTEOPENIA
     Dosage: 70 MG, UNK
     Route: 048
  2. FOSAMAX [Suspect]
     Indication: OSTEOPOROSIS
     Dosage: 10 MG, QD
     Dates: start: 19990903
  3. ALENDRONATE SODIUM [Suspect]
     Indication: OSTEOPENIA
     Dosage: 70 MG, UNK
     Route: 048
     Dates: start: 20080102, end: 20100101
  4. CORTICOSTEROIDS (UNSPECIFIED) [Concomitant]
     Indication: RHEUMATOID ARTHRITIS
     Dosage: UNK
     Dates: start: 1993
  5. DARVOCET-N [Concomitant]
     Indication: RHEUMATOID ARTHRITIS
  6. METHOTREXATE [Concomitant]
     Indication: RHEUMATOID ARTHRITIS
  7. PREDNISONE [Concomitant]
     Indication: RHEUMATOID ARTHRITIS

REACTIONS (32)
  - Femur fracture [Unknown]
  - Femur fracture [Unknown]
  - Femur fracture [Unknown]
  - Intramedullary rod insertion [Unknown]
  - Myocardial infarction [Unknown]
  - Open reduction of fracture [Unknown]
  - Mammoplasty [Unknown]
  - Cholecystectomy [Unknown]
  - Fall [Unknown]
  - Rib fracture [Unknown]
  - Device failure [Unknown]
  - Low turnover osteopathy [Unknown]
  - Breast lump removal [Unknown]
  - Carpal tunnel syndrome [Unknown]
  - Bursitis [Unknown]
  - Compression fracture [Not Recovered/Not Resolved]
  - Spinal fracture [Unknown]
  - Lung infiltration [Unknown]
  - Staphylococcal infection [Unknown]
  - Latent tuberculosis [Unknown]
  - Stent placement [Unknown]
  - Varices oesophageal [Unknown]
  - Hepatic cirrhosis [Unknown]
  - Dyslipidaemia [Unknown]
  - Pneumonia [Unknown]
  - Pneumonitis [Unknown]
  - Appendicectomy [Unknown]
  - Retinal tear [Unknown]
  - Sciatica [Unknown]
  - Lumbar spinal stenosis [Unknown]
  - Wound haemorrhage [Unknown]
  - Hypertension [Unknown]
